FAERS Safety Report 14746385 (Version 2)
Quarter: 2018Q2

REPORT INFORMATION
  Report Type: Spontaneous
  Country: US (occurrence: US)
  Receive Date: 20180411
  Receipt Date: 20180502
  Transmission Date: 20180711
  Serious: No
  Sender: FDA-Public Use
  Company Number: US-STRONGBRIDGE BIOPHARMA-2018-STR-000092

PATIENT
  Age: 63 Year
  Sex: Female

DRUGS (2)
  1. KEVEYIS [Suspect]
     Active Substance: DICHLORPHENAMIDE
     Indication: PRODUCT USED FOR UNKNOWN INDICATION
     Dosage: UNK
     Route: 048
     Dates: start: 20170501
  2. KEVEYIS [Suspect]
     Active Substance: DICHLORPHENAMIDE
     Dosage: 1/2 TAB FOUR TIMES DAILY PLUS AN ADDITIONAL 1/2 TABLET AS NEEDED
     Route: 048
     Dates: start: 20170501

REACTIONS (7)
  - Acidosis [Not Recovered/Not Resolved]
  - Intentional product use issue [Unknown]
  - Malaise [Recovered/Resolved]
  - Dyspnoea [None]
  - Intentional product use issue [Not Recovered/Not Resolved]
  - Paraesthesia [Not Recovered/Not Resolved]
  - Disease recurrence [Not Recovered/Not Resolved]

NARRATIVE: CASE EVENT DATE: 201803
